FAERS Safety Report 7633685-7 (Version None)
Quarter: 2011Q3

REPORT INFORMATION
  Report Type: 
  Country: None (occurrence: None)
  Receive Date: 20110701
  Receipt Date: 20110209
  Transmission Date: 20111222
  Serious: Yes (Other)
  Sender: FDA-Public Use
  Company Number: 7041685

PATIENT
  Age: 40 Year
  Sex: Female

DRUGS (2)
  1. LYRICA [Suspect]
  2. REBIF [Suspect]
     Indication: PRODUCT USED FOR UNKNOWN INDICATION
     Dosage: 44 MCG, 3 IN 1 WK, SUBCUTANEOUS
     Route: 058
     Dates: start: 20101201, end: 20110211

REACTIONS (7)
  - FLUID RETENTION [None]
  - CELLULITIS [None]
  - PERICARDIAL EFFUSION [None]
  - WEIGHT [None]
  - URINE OUTPUT DECREASED [None]
  - WEIGHT INCREASED [None]
  - FALL [None]
